FAERS Safety Report 6243603-4 (Version None)
Quarter: 2009Q2

REPORT INFORMATION
  Report Type: 
  Country: None (occurrence: None)
  Receive Date: 20090624
  Receipt Date: 20090612
  Transmission Date: 20091009
  Serious: Yes (Hospitalization, Other)
  Sender: FDA-Public Use
  Company Number: US-PFIZER INC-2009211277

PATIENT
  Sex: Male
  Weight: 52.608 kg

DRUGS (1)
  1. SUTENT [Suspect]
     Indication: NON-SMALL CELL LUNG CANCER
     Dosage: 37.5 MG, 1X/DAY
     Route: 048
     Dates: start: 20090316

REACTIONS (5)
  - DIARRHOEA [None]
  - FATIGUE [None]
  - HYPOPHAGIA [None]
  - JAUNDICE [None]
  - THROMBOCYTOPENIA [None]
